FAERS Safety Report 20977594 (Version 1)
Quarter: 2022Q2

REPORT INFORMATION
  Report Type: Spontaneous
  Country: GB (occurrence: GB)
  Receive Date: 20220618
  Receipt Date: 20220618
  Transmission Date: 20220720
  Serious: Yes (Other)
  Sender: FDA-Public Use
  Company Number: GB-JNJFOC-20220524214

PATIENT

DRUGS (2)
  1. RISPERDAL [Suspect]
     Active Substance: RISPERIDONE
     Indication: Product used for unknown indication
     Route: 048
  2. FLUPENTIXOL DIHYDROCHLORIDE [Suspect]
     Active Substance: FLUPENTIXOL DIHYDROCHLORIDE
     Indication: Product used for unknown indication
     Route: 065

REACTIONS (7)
  - Suicide attempt [Recovering/Resolving]
  - Paralysis [Recovering/Resolving]
  - Skin striae [Recovering/Resolving]
  - Weight increased [Unknown]
  - Blood pressure increased [Recovering/Resolving]
  - Parkinsonism [Recovering/Resolving]
  - Intentional product use issue [Unknown]
